FAERS Safety Report 22366685 (Version 1)
Quarter: 2023Q2

REPORT INFORMATION
  Report Type: Spontaneous
  Country: US (occurrence: None)
  Receive Date: 20230524
  Receipt Date: 20230524
  Transmission Date: 20230721
  Serious: Yes (Hospitalization)
  Sender: FDA-Public Use
  Company Number: None

PATIENT
  Age: 66 Year
  Sex: Male

DRUGS (7)
  1. TRULICITY [Suspect]
     Active Substance: DULAGLUTIDE
     Indication: Diabetes mellitus
     Dosage: 0.75 MG ONCE WEEKLY SUBCUTANEOUS?
     Route: 058
     Dates: start: 20230105, end: 20230201
  2. ESTRADIOL [Concomitant]
     Active Substance: ESTRADIOL
  3. QUETIAPINE [Concomitant]
     Active Substance: QUETIAPINE
  4. Hydroxyzine pamoate 50mg [Concomitant]
  5. CLONAZEPAM [Concomitant]
     Active Substance: CLONAZEPAM
  6. MIRTAZAPINE [Concomitant]
     Active Substance: MIRTAZAPINE
  7. TRAZODONE [Concomitant]
     Active Substance: TRAZODONE HYDROCHLORIDE

REACTIONS (1)
  - Hypertensive urgency [None]

NARRATIVE: CASE EVENT DATE: 20230201
